FAERS Safety Report 25489504 (Version 1)
Quarter: 2025Q2

REPORT INFORMATION
  Report Type: Spontaneous
  Country: TW (occurrence: TW)
  Receive Date: 20250627
  Receipt Date: 20250627
  Transmission Date: 20250716
  Serious: Yes (Death, Other)
  Sender: FRESENIUS KABI
  Company Number: TW-FreseniusKabi-FK202508702

PATIENT
  Age: 62 Year
  Sex: Female
  Weight: 59.1 kg

DRUGS (6)
  1. PACLITAXEL [Suspect]
     Active Substance: PACLITAXEL
     Indication: Hepatic cancer
     Route: 041
     Dates: start: 20250506
  2. PACLITAXEL [Suspect]
     Active Substance: PACLITAXEL
     Indication: Cervix carcinoma
     Route: 041
     Dates: start: 20250606
  3. PACLITAXEL [Suspect]
     Active Substance: PACLITAXEL
     Route: 041
     Dates: start: 20250613
  4. CARBOPLATIN [Suspect]
     Active Substance: CARBOPLATIN
     Indication: Hepatic cancer
     Route: 042
     Dates: start: 20250506
  5. CARBOPLATIN [Suspect]
     Active Substance: CARBOPLATIN
     Indication: Cervix carcinoma
     Dates: start: 20250606
  6. CARBOPLATIN [Suspect]
     Active Substance: CARBOPLATIN
     Dates: start: 20250613

REACTIONS (3)
  - Pneumonia [Fatal]
  - Neutropenia [Fatal]
  - Septic shock [Fatal]

NARRATIVE: CASE EVENT DATE: 20250513
